FAERS Safety Report 10177967 (Version 1)
Quarter: 2014Q2

REPORT INFORMATION
  Report Type: Spontaneous
  Country: TR (occurrence: TR)
  Receive Date: 20140516
  Receipt Date: 20140516
  Transmission Date: 20141212
  Serious: Yes (Other)
  Sender: FDA-Public Use
  Company Number: TR-009507513-1405TUR007780

PATIENT
  Sex: 0

DRUGS (1)
  1. JANUMET 50/1000 MG [Suspect]
     Indication: TYPE 2 DIABETES MELLITUS
     Route: 048

REACTIONS (1)
  - Blood glucose fluctuation [Unknown]
